FAERS Safety Report 5013106-3 (Version None)
Quarter: 2006Q2

REPORT INFORMATION
  Report Type: 
  Country: None (occurrence: None)
  Receive Date: 20060530
  Receipt Date: 20060227
  Transmission Date: 20061013
  Serious: No
  Sender: FDA-Public Use
  Company Number: US-GLAXOSMITHKLINE-A0595318A

PATIENT
  Age: 42 Year
  Sex: Female

DRUGS (3)
  1. WELLBUTRIN XL [Suspect]
     Indication: DEPRESSION
     Dosage: 150MG PER DAY
     Route: 048
     Dates: start: 20060201, end: 20060201
  2. VITAMINS [Concomitant]
  3. IBUPROFEN [Concomitant]

REACTIONS (3)
  - BACK PAIN [None]
  - LOCAL SWELLING [None]
  - NECK PAIN [None]
